FAERS Safety Report 17911391 (Version 1)
Quarter: 2020Q2

REPORT INFORMATION
  Report Type: Spontaneous
  Country: NO (occurrence: NO)
  Receive Date: 20200618
  Receipt Date: 20200618
  Transmission Date: 20200714
  Serious: Yes (Other)
  Sender: FDA-Public Use
  Company Number: NO-PFIZER INC-2020071221

PATIENT
  Age: 54 Year
  Sex: Female

DRUGS (6)
  1. SOMAVERT [Suspect]
     Active Substance: PEGVISOMANT
     Indication: ACROMEGALY
     Dosage: 10 MG, DAILY
     Route: 058
     Dates: start: 20180515
  2. SOMAVERT [Suspect]
     Active Substance: PEGVISOMANT
     Dosage: 15 MG, DAILY
     Route: 058
     Dates: start: 2018
  3. ATACAND [Concomitant]
     Active Substance: CANDESARTAN CILEXETIL
     Indication: HEADACHE
     Dosage: 4 MG
  4. PINEX FORTE [Concomitant]
     Active Substance: ACETAMINOPHEN\CODEINE PHOSPHATE
     Indication: HEADACHE
     Dosage: 0-2 TABLETS DAILY, AS NEEDED
  5. CONSTELLA [Concomitant]
     Active Substance: LINACLOTIDE
     Indication: IRRITABLE BOWEL SYNDROME
     Dosage: 290 UG, 1X/DAY
  6. ZYRTEC [Concomitant]
     Active Substance: CETIRIZINE HYDROCHLORIDE
     Dosage: 10 MG, DAILY

REACTIONS (14)
  - Breast swelling [Unknown]
  - Joint swelling [Recovering/Resolving]
  - Rosacea [Recovering/Resolving]
  - Lymphadenopathy [Recovering/Resolving]
  - Breast pain [Recovering/Resolving]
  - Breast enlargement [Recovering/Resolving]
  - Breast induration [Recovering/Resolving]
  - Mammogram abnormal [Unknown]
  - Liquid product physical issue [Unknown]
  - Breast tenderness [Unknown]
  - Peripheral swelling [Recovering/Resolving]
  - Urticaria papular [Recovering/Resolving]
  - Therapeutic product effect decreased [Unknown]
  - Poor quality product administered [Unknown]

NARRATIVE: CASE EVENT DATE: 20200316
